FAERS Safety Report 13162308 (Version 1)
Quarter: 2017Q1

REPORT INFORMATION
  Report Type: Spontaneous
  Country: US (occurrence: US)
  Receive Date: 20170125
  Receipt Date: 20170125
  Transmission Date: 20170428
  Serious: Yes (Other)
  Sender: FDA-Public Use
  Company Number: None

PATIENT
  Age: 58 Year
  Sex: Female
  Weight: 63 kg

DRUGS (12)
  1. VITAMIN B [Concomitant]
     Active Substance: VITAMIN B
  2. SUPPLEMENTS [Concomitant]
     Active Substance: UNSPECIFIED INGREDIENT
  3. ZYRTEC [Concomitant]
     Active Substance: CETIRIZINE HYDROCHLORIDE
  4. FENTANYL. [Suspect]
     Active Substance: FENTANYL
     Indication: MASTOCYTOSIS
     Dosage: ?          OTHER STRENGTH:25;QUANTITY:1 PATCH(ES);OTHER FREQUENCY:EVERY 72 HRS;?
     Route: 062
  5. SINGULAIR [Concomitant]
     Active Substance: MONTELUKAST SODIUM
  6. KLONOPIN [Concomitant]
     Active Substance: CLONAZEPAM
  7. FLONASE [Concomitant]
     Active Substance: FLUTICASONE PROPIONATE
  8. VITAMIN D [Concomitant]
     Active Substance: CHOLECALCIFEROL
  9. OXYCODONE [Concomitant]
     Active Substance: OXYCODONE
  10. ALLEGRA [Concomitant]
     Active Substance: FEXOFENADINE HYDROCHLORIDE
  11. PREDNISONE. [Concomitant]
     Active Substance: PREDNISONE
  12. ADDERALL [Concomitant]
     Active Substance: AMPHETAMINE ASPARTATE\AMPHETAMINE SULFATE\DEXTROAMPHETAMINE SACCHARATE\DEXTROAMPHETAMINE SULFATE

REACTIONS (3)
  - Depressed mood [None]
  - Mood swings [None]
  - Headache [None]

NARRATIVE: CASE EVENT DATE: 20161001
